FAERS Safety Report 9511245 (Version 1)
Quarter: 2013Q3

REPORT INFORMATION
  Report Type: Spontaneous
  Country: TW (occurrence: TW)
  Receive Date: 20130910
  Receipt Date: 20130910
  Transmission Date: 20140515
  Serious: Yes (Hospitalization, Other)
  Sender: FDA-Public Use
  Company Number: TW-AMGEN-TWNSP2013062866

PATIENT
  Age: 84 Year
  Sex: Female

DRUGS (3)
  1. ARANESP [Suspect]
     Indication: NEPHROGENIC ANAEMIA
     Dosage: 20 MCG, UNK
     Route: 058
     Dates: start: 20130829, end: 20130829
  2. ANGIOTENSIN II ANTAGONISTS, PLAIN [Concomitant]
     Dosage: UNK
     Route: 065
  3. BETA BLOCKING AGENTS [Concomitant]
     Dosage: UNK
     Route: 065

REACTIONS (1)
  - Muscle spasms [Recovered/Resolved]
